FAERS Safety Report 4269423-8 (Version None)
Quarter: 2004Q1

REPORT INFORMATION
  Report Type: 
  Country: None (occurrence: None)
  Receive Date: 20040108
  Receipt Date: 20031223
  Transmission Date: 20041129
  Serious: Yes (Hospitalization)
  Sender: FDA-Public Use
  Company Number: STA-AE-03-MTX-215

PATIENT
  Age: 53 Year
  Sex: Female

DRUGS (5)
  1. METHOTREXATE [Suspect]
     Indication: RHEUMATOID ARTHRITIS
     Dosage: 2.5 MG 4X PER 1 WK, ORAL
     Route: 048
  2. PREDNISONE [Suspect]
     Indication: RHEUMATOID ARTHRITIS
     Dosage: 5 MG 1X PER 1 DAY, ORAL
     Route: 048
  3. DILTIAZEM HYDROCHLORIDE [Suspect]
     Dosage: 200 MG 1X PER 1 DAY, ORAL
     Route: 048
  4. REMICADE [Suspect]
     Indication: RHEUMATOID ARTHRITIS
     Dosage: 3 MG 1X PER 1 CYC, INTRAVENOUS
     Route: 042
     Dates: start: 20030107
  5. FOLIC ACID [Suspect]
     Dosage: ORAL
     Route: 048

REACTIONS (2)
  - PERIPHERAL ISCHAEMIA [None]
  - ULTRASOUND DOPPLER ABNORMAL [None]
